FAERS Safety Report 9120993 (Version 3)
Quarter: 2013Q1

REPORT INFORMATION
  Report Type: Spontaneous
  Country: US (occurrence: US)
  Receive Date: 20130226
  Receipt Date: 20130305
  Transmission Date: 20140127
  Serious: Yes (Other)
  Sender: FDA-Public Use
  Company Number: CHPA2013US003285

PATIENT
  Age: 69 Year
  Sex: Female

DRUGS (2)
  1. TRANSDERM SCOP [Suspect]
     Indication: MOTION SICKNESS
     Dosage: 1 DF, ONCE/SINGLE
     Route: 062
     Dates: start: 20130119, end: 20130222
  2. CIPROL [Concomitant]
     Dosage: UNK, UNK

REACTIONS (7)
  - Disorientation [Recovered/Resolved]
  - Stomatitis [Recovered/Resolved]
  - Ocular hyperaemia [Recovered/Resolved]
  - Eye irritation [Recovered/Resolved]
  - Oral mucosal blistering [Recovered/Resolved]
  - Pain [Recovered/Resolved]
  - Aphagia [Recovered/Resolved]
